FAERS Safety Report 7148085-6 (Version None)
Quarter: 2010Q4

REPORT INFORMATION
  Report Type: 
  Country: None (occurrence: None)
  Receive Date: 20101209
  Receipt Date: 20100723
  Transmission Date: 20110411
  Serious: No
  Sender: FDA-Public Use
  Company Number: US-ABBOTT-10P-163-0660617-00

PATIENT
  Age: 28 Year
  Sex: Male

DRUGS (1)
  1. VICODIN ES [Suspect]
     Indication: BACK DISORDER

REACTIONS (2)
  - DRUG INEFFECTIVE [None]
  - SENSORY DISTURBANCE [None]
